FAERS Safety Report 23957035 (Version 1)
Quarter: 2024Q2

REPORT INFORMATION
  Report Type: Other
  Country: CA (occurrence: CA)
  Receive Date: 20240610
  Receipt Date: 20240610
  Transmission Date: 20240715
  Serious: Yes (Death, Other)
  Sender: FDA-Public Use
  Company Number: CA-PFIZER INC-202400189312

PATIENT
  Age: 64 Year
  Sex: Male

DRUGS (7)
  1. HYDROMORPHONE HYDROCHLORIDE [Suspect]
     Active Substance: HYDROMORPHONE HYDROCHLORIDE
     Dosage: UNK
     Route: 065
  2. BENZOYLECGONINE [Suspect]
     Active Substance: BENZOYLECGONINE
     Route: 065
  3. CAFFEINE [Suspect]
     Active Substance: CAFFEINE
     Route: 065
  4. COCAINE [Suspect]
     Active Substance: COCAINE
     Route: 065
  5. FENTANYL [Suspect]
     Active Substance: FENTANYL\FENTANYL CITRATE
     Route: 065
  6. NALOXONE [Suspect]
     Active Substance: NALOXONE
     Route: 065
  7. NICOTINE [Suspect]
     Active Substance: NICOTINE
     Route: 065

REACTIONS (1)
  - Toxicity to various agents [Fatal]
